FAERS Safety Report 21848209 (Version 1)
Quarter: 2023Q1

REPORT INFORMATION
  Report Type: Spontaneous
  Country: CH (occurrence: CH)
  Receive Date: 20230111
  Receipt Date: 20230111
  Transmission Date: 20230418
  Serious: Yes (Other)
  Sender: FDA-Public Use
  Company Number: CH-PFIZER INC-202201390122

PATIENT
  Age: 53 Year
  Sex: Male
  Weight: 64 kg

DRUGS (5)
  1. METHYLPREDNISOLONE [Suspect]
     Active Substance: METHYLPREDNISOLONE
     Indication: Chemotherapy
     Dosage: 40 MG, CYCLIC
     Route: 037
     Dates: start: 20221220, end: 20221220
  2. METHOTREXATE [Concomitant]
     Active Substance: METHOTREXATE
     Dosage: 15 MG
     Route: 037
  3. CYTARABINE [Concomitant]
     Active Substance: CYTARABINE
     Dosage: 40 MG
     Route: 037
  4. METOCLOPRAMIDE HYDROCHLORIDE [Concomitant]
     Active Substance: METOCLOPRAMIDE HYDROCHLORIDE
     Indication: Vomiting
     Dosage: UNK
     Route: 048
     Dates: start: 20221213, end: 20221221
  5. BACTRIM [Concomitant]
     Active Substance: SULFAMETHOXAZOLE\TRIMETHOPRIM
     Indication: Pneumocystis jirovecii pneumonia
     Dosage: UNK
     Route: 048
     Dates: start: 20220119

REACTIONS (5)
  - Off label use [Unknown]
  - Expired product administered [Unknown]
  - Back pain [Recovered/Resolved]
  - Muscle spasms [Unknown]
  - Pain [Unknown]
